FAERS Safety Report 11726905 (Version 2)
Quarter: 2015Q4

REPORT INFORMATION
  Report Type: Spontaneous
  Country: IT (occurrence: IT)
  Receive Date: 20151112
  Receipt Date: 20151116
  Transmission Date: 20160304
  Serious: Yes (Other)
  Sender: FDA-Public Use
  Company Number: IT-009507513-1511ITA002554

PATIENT
  Age: 72 Year
  Sex: Male

DRUGS (2)
  1. SINEMET [Suspect]
     Active Substance: CARBIDOPA\LEVODOPA
     Dosage: 1 DOSE UNIT, DAILY
     Route: 048
     Dates: start: 20110407
  2. SINEMET [Suspect]
     Active Substance: CARBIDOPA\LEVODOPA
     Indication: PARKINSON^S DISEASE
     Dosage: 1.5 DOSE UNIT, DAILY
     Route: 048
     Dates: start: 20090201, end: 20110406

REACTIONS (1)
  - Hyperkinesia [Recovering/Resolving]

NARRATIVE: CASE EVENT DATE: 20110406
